FAERS Safety Report 5385909-7 (Version None)
Quarter: 2007Q3

REPORT INFORMATION
  Report Type: 
  Country: None (occurrence: None)
  Receive Date: 20070712
  Receipt Date: 20070711
  Transmission Date: 20080115
  Serious: Yes (Death, Life-Threatening)
  Sender: FDA-Public Use
  Company Number: US-SHR-US-2006-018479

PATIENT
  Age: 49 Year
  Sex: Male

DRUGS (1)
  1. ULTRAVIST 300 [Suspect]
     Indication: COMPUTERISED TOMOGRAM ABDOMEN
     Dosage: 150 ML, 1 DOSE
     Route: 042
     Dates: start: 20060628, end: 20060628

REACTIONS (5)
  - CARDIAC ARREST [None]
  - LARYNGEAL OEDEMA [None]
  - PRURITUS [None]
  - RESPIRATORY ARREST [None]
  - SNEEZING [None]
